FAERS Safety Report 21240830 (Version 1)
Quarter: 2022Q3

REPORT INFORMATION
  Report Type: Spontaneous
  Country: US (occurrence: None)
  Receive Date: 20220822
  Receipt Date: 20220822
  Transmission Date: 20221026
  Serious: Yes (Death)
  Sender: FDA-Public Use
  Company Number: None

PATIENT
  Sex: Female

DRUGS (18)
  1. VYNDAMAX [Suspect]
     Active Substance: TAFAMIDIS
     Indication: Restrictive cardiomyopathy
     Dosage: FREQUENCY : DAILY;?
     Route: 048
     Dates: start: 20220727
  2. ALBUTEROL [Concomitant]
     Active Substance: ALBUTEROL
  3. BUMETANIDE [Concomitant]
     Active Substance: BUMETANIDE
  4. COMBIGAN [Concomitant]
     Active Substance: BRIMONIDINE TARTRATE\TIMOLOL MALEATE
  5. DILTIAZEM [Concomitant]
     Active Substance: DILTIAZEM
  6. ELIQUIS [Concomitant]
     Active Substance: APIXABAN
  7. FIASP [Concomitant]
     Active Substance: INSULIN ASPART
  8. KETOCONAZOLE [Concomitant]
     Active Substance: KETOCONAZOLE
  9. LATANOPROST [Concomitant]
     Active Substance: LATANOPROST
  10. LEVEMIR [Concomitant]
     Active Substance: INSULIN DETEMIR
  11. MAGNESIUM OXIDE [Concomitant]
     Active Substance: MAGNESIUM OXIDE
  12. MEMANTINE [Concomitant]
     Active Substance: MEMANTINE
  13. MONTELUKAST [Concomitant]
     Active Substance: MONTELUKAST SODIUM
  14. PRAVASTATIN [Concomitant]
     Active Substance: PRAVASTATIN
  15. ROPINIROLE [Concomitant]
     Active Substance: ROPINIROLE
  16. SERTRALINE [Concomitant]
     Active Substance: SERTRALINE HYDROCHLORIDE
  17. SPIRONOLACTONE [Concomitant]
     Active Substance: SPIRONOLACTONE
  18. SYMBICORT [Concomitant]
     Active Substance: BUDESONIDE\FORMOTEROL FUMARATE DIHYDRATE

REACTIONS (3)
  - Dysphagia [None]
  - Oligodipsia [None]
  - Condition aggravated [None]
